APPROVED DRUG PRODUCT: HARVONI
Active Ingredient: LEDIPASVIR; SOFOSBUVIR
Strength: 33.75MG;150MG/PACKET
Dosage Form/Route: PELLETS;ORAL
Application: N212477 | Product #001
Applicant: GILEAD SCIENCES INC
Approved: Aug 28, 2019 | RLD: Yes | RS: No | Type: RX

PATENTS:
Patent 8580765 | Expires: Mar 21, 2028
Patent 8273341 | Expires: May 12, 2030
Patent 7964580 | Expires: Mar 26, 2029
Patent 8334270 | Expires: Mar 21, 2028
Patent 8822430 | Expires: May 12, 2030
Patent 8735372 | Expires: Mar 21, 2028
Patent 8841278 | Expires: May 12, 2030
Patent 8618076 | Expires: Dec 11, 2030
Patent 8633309 | Expires: Mar 26, 2029
Patent 9284342 | Expires: Sep 13, 2030
Patent 9085573 | Expires: Mar 21, 2028
Patent 9393256 | Expires: Sep 14, 2032
Patent 8889159 | Expires: Mar 26, 2029
Patent 9511056 | Expires: May 12, 2030
Patent 8088368 | Expires: May 12, 2030
Patent 10456414 | Expires: Sep 14, 2032
Patent 8580765*PED | Expires: Sep 21, 2028
Patent 8273341*PED | Expires: Nov 12, 2030
Patent 7964580*PED | Expires: Sep 26, 2029
Patent 8334270*PED | Expires: Sep 21, 2028
Patent 8088368*PED | Expires: Nov 12, 2030
Patent 8822430*PED | Expires: Nov 12, 2030
Patent 8735372*PED | Expires: Sep 21, 2028
Patent 8841278*PED | Expires: Nov 12, 2030
Patent 8618076*PED | Expires: Jun 11, 2031
Patent 8633309*PED | Expires: Sep 26, 2029
Patent 9284342*PED | Expires: Mar 13, 2031
Patent 9085573*PED | Expires: Sep 21, 2028
Patent 9393256*PED | Expires: Mar 14, 2033
Patent 8889159*PED | Expires: Sep 26, 2029
Patent 9511056*PED | Expires: Nov 12, 2030

EXCLUSIVITY:
Code: ODE-262 | Date: Aug 28, 2026
Code: ODE-263 | Date: Aug 28, 2026
Code: ODE-264 | Date: Aug 28, 2026